FAERS Safety Report 9011700 (Version 1)
Quarter: 2013Q1

REPORT INFORMATION
  Report Type: Report from Study
  Country: DE (occurrence: DE)
  Receive Date: 20130107
  Receipt Date: 20130107
  Transmission Date: 20140127
  Serious: Yes (Life-Threatening, Hospitalization)
  Sender: FDA-Public Use
  Company Number: DE-ROCHE-1175661

PATIENT
  Age: 75 Year
  Sex: Male

DRUGS (10)
  1. ALTEPLASE [Suspect]
     Indication: ACUTE MYOCARDIAL INFARCTION
     Route: 042
     Dates: start: 19940323
  2. HIRUDIN [Suspect]
     Indication: ACUTE MYOCARDIAL INFARCTION
     Route: 042
     Dates: start: 19940323
  3. HIRUDIN [Suspect]
     Dosage: 2 ML/H
     Route: 042
     Dates: start: 19940323, end: 19940325
  4. HEPARIN [Suspect]
     Indication: ACUTE MYOCARDIAL INFARCTION
     Route: 042
     Dates: start: 19940325, end: 19940326
  5. DOBUTREX [Concomitant]
     Route: 065
     Dates: start: 19940325, end: 19940328
  6. ASPISOL [Concomitant]
     Indication: ACUTE MYOCARDIAL INFARCTION
     Route: 042
     Dates: start: 19940323, end: 19940326
  7. CORANGIN [Concomitant]
     Indication: ACUTE MYOCARDIAL INFARCTION
     Route: 048
     Dates: start: 19940325, end: 19940325
  8. DIAZEPAM [Concomitant]
     Indication: ACUTE MYOCARDIAL INFARCTION
     Route: 048
     Dates: start: 19940323, end: 19940325
  9. ZANTIC [Concomitant]
     Indication: ACUTE MYOCARDIAL INFARCTION
     Route: 042
     Dates: start: 19940325, end: 19940325
  10. DOPAMIN [Concomitant]
     Indication: ACUTE MYOCARDIAL INFARCTION
     Route: 042
     Dates: start: 19940325, end: 19940328

REACTIONS (14)
  - Ventricular extrasystoles [Recovered/Resolved]
  - Puncture site haemorrhage [Recovered/Resolved]
  - Infarction [Recovered/Resolved]
  - Haematemesis [Recovered/Resolved]
  - Melaena [Recovered/Resolved]
  - Arrhythmia [Recovered/Resolved]
  - Cardiovascular insufficiency [Recovered/Resolved]
  - Gastrointestinal haemorrhage [Recovered/Resolved]
  - Cardiogenic shock [Recovered/Resolved]
  - Cardiac failure [Recovered/Resolved]
  - Renal failure acute [Recovered/Resolved]
  - Angina pectoris [Recovered/Resolved]
  - Cardiac arrest [Recovered/Resolved]
  - Bradycardia [Recovered/Resolved]
